FAERS Safety Report 5722228-0 (Version None)
Quarter: 2008Q2

REPORT INFORMATION
  Report Type: 
  Country: None (occurrence: None)
  Receive Date: 20080429
  Receipt Date: 20080417
  Transmission Date: 20081010
  Serious: Yes (Hospitalization, Other)
  Sender: FDA-Public Use
  Company Number: CA-ELI_LILLY_AND_COMPANY-CA200803004154

PATIENT
  Sex: Male
  Weight: 53.968 kg

DRUGS (17)
  1. FORTEO [Suspect]
     Indication: OSTEOPOROSIS
     Dosage: 20 UG, DAILY (1/D)
     Route: 058
     Dates: start: 20080130
  2. RAMIPRIL [Concomitant]
     Dosage: 10 MG, DAILY (1/D)
     Route: 048
  3. RABEPRAZOLE SODIUM [Concomitant]
     Dosage: 20 MG, 2/D
     Route: 048
  4. FUROSEMIDE [Concomitant]
     Dosage: 20 MG, UNK
     Route: 048
  5. ARICEPT [Concomitant]
     Dosage: 10 MG, UNK
     Route: 048
  6. DILTIAZEM [Concomitant]
     Dosage: 240 MG, UNK
     Route: 048
  7. PLAVIX [Concomitant]
     Dosage: 75 MG, UNK
     Route: 048
  8. LIPITOR [Concomitant]
     Dosage: 40 MG, UNK
     Route: 048
  9. AMIODARONE HCL [Concomitant]
     Dosage: 200 MG, UNK
     Route: 048
  10. SPIRIVA [Concomitant]
     Dosage: 18 MG, UNK
  11. ADVAIR HFA [Concomitant]
     Dosage: 250 MG, UNK
  12. NITRO-DUR [Concomitant]
     Dosage: 0.4 UNK, UNK
     Route: 062
  13. IPRATROPIUM BROMIDE [Concomitant]
     Dosage: UNK D/F, EVERY 4 HRS
     Route: 055
  14. ALBUTEROL [Concomitant]
     Dosage: UNK D/F, EVERY 4 HRS
     Route: 055
  15. NYSTATIN [Concomitant]
     Dosage: 100000 U, 4/D
  16. CORTICOSTEROIDS [Concomitant]
     Route: 061
  17. ACTONEL [Concomitant]
     Dosage: 35 MG, WEEKLY (1/W)
     Route: 048

REACTIONS (4)
  - CHEST DISCOMFORT [None]
  - GASTROINTESTINAL HAEMORRHAGE [None]
  - SYNCOPE [None]
  - WEIGHT INCREASED [None]
